FAERS Safety Report 7807948-6 (Version None)
Quarter: 2011Q4

REPORT INFORMATION
  Report Type: 
  Country: None (occurrence: None)
  Receive Date: 20111011
  Receipt Date: 20111011
  Transmission Date: 20120403
  Serious: Yes (Other)
  Sender: FDA-Public Use
  Company Number: None

PATIENT
  Age: 66 Year
  Sex: Female
  Weight: 68.038 kg

DRUGS (1)
  1. TRIAMCINOLONE [Suspect]
     Indication: PORPHYRIA
     Dosage: SMALL AMOUNT OF CREAM
     Route: 061
     Dates: start: 20110517, end: 20110620

REACTIONS (2)
  - HEADACHE [None]
  - HYPOAESTHESIA [None]
